FAERS Safety Report 20298451 (Version 1)
Quarter: 2022Q1

REPORT INFORMATION
  Report Type: Spontaneous
  Country: US (occurrence: None)
  Receive Date: 20220104
  Receipt Date: 20220104
  Transmission Date: 20220423
  Serious: Yes (Other)
  Sender: FDA-Public Use
  Company Number: None

PATIENT
  Age: 68 Year
  Sex: Female
  Weight: 52.16 kg

DRUGS (7)
  1. TERBINAFINE [Suspect]
     Active Substance: TERBINAFINE
     Indication: Onychomycosis
     Dosage: FREQUENCY : PILL DAILY;?
     Route: 048
     Dates: start: 20210927, end: 20211108
  2. PROLIA [Concomitant]
     Active Substance: DENOSUMAB
  3. ATENOLOL [Concomitant]
     Active Substance: ATENOLOL
  4. CLONAZEPAM [Concomitant]
     Active Substance: CLONAZEPAM
  5. VITAMIN D [Concomitant]
     Active Substance: VITAMIN D NOS
  6. VITAMINS [Concomitant]
     Active Substance: VITAMINS
  7. DIETARY SUPPLEMENT [Concomitant]
     Active Substance: DIETARY SUPPLEMENT

REACTIONS (3)
  - Ageusia [None]
  - Dysgeusia [None]
  - Retching [None]

NARRATIVE: CASE EVENT DATE: 20211106
